FAERS Safety Report 17009740 (Version 1)
Quarter: 2019Q4

REPORT INFORMATION
  Report Type: Spontaneous
  Country: FR (occurrence: FR)
  Receive Date: 20191108
  Receipt Date: 20191108
  Transmission Date: 20200122
  Serious: Yes (Death, Life-Threatening, Hospitalization, Other)
  Sender: FDA-Public Use
  Company Number: FR-BIOVITRUM-2019FR1145

PATIENT
  Age: 75 Year
  Sex: Male

DRUGS (11)
  1. CORDARONE [Concomitant]
     Active Substance: AMIODARONE HYDROCHLORIDE
     Indication: ATRIAL FIBRILLATION
  2. COUMADIN [Concomitant]
     Active Substance: WARFARIN SODIUM
     Indication: ATRIAL FIBRILLATION
     Dosage: 5 MG/DAY TO BE INTRODUCED IN THE EVENING OF 18APR2019
     Dates: start: 20190418
  3. KINERET [Suspect]
     Active Substance: ANAKINRA
     Route: 058
     Dates: start: 20190430, end: 201905
  4. ISONIAZIDE [Concomitant]
     Active Substance: ISONIAZID
     Indication: TUBERCULOSIS
     Route: 048
     Dates: start: 20190401
  5. PYRAZINAMIDE. [Concomitant]
     Active Substance: PYRAZINAMIDE
     Indication: TUBERCULOSIS
     Dates: start: 20190401
  6. BISOCE [Concomitant]
     Active Substance: BISOPROLOL
     Indication: ATRIAL FIBRILLATION
  7. RIFAMPICINE [Concomitant]
     Active Substance: RIFAMPIN
     Indication: TUBERCULOSIS
     Route: 048
     Dates: start: 20190401
  8. KINERET [Suspect]
     Active Substance: ANAKINRA
     Indication: STILL^S DISEASE
     Route: 058
     Dates: start: 20190413, end: 20190425
  9. DEXAMBUTIL [Concomitant]
     Indication: TUBERCULOSIS
     Route: 048
     Dates: start: 20190401
  10. PARACETAMOL [Concomitant]
     Active Substance: ACETAMINOPHEN
  11. BECILAN [Concomitant]
     Active Substance: PYRIDOXINE

REACTIONS (8)
  - Neutropenia [Unknown]
  - Deep vein thrombosis [Unknown]
  - Septic shock [Fatal]
  - Confusional state [Unknown]
  - Thrombocytopenia [Unknown]
  - Gastrointestinal perforation [Unknown]
  - Acute kidney injury [Unknown]
  - Cardiac failure [Unknown]

NARRATIVE: CASE EVENT DATE: 20190415
